FAERS Safety Report 5190063-0 (Version None)
Quarter: 2006Q4

REPORT INFORMATION
  Report Type: 
  Country: None (occurrence: None)
  Receive Date: 20061222
  Receipt Date: 20061214
  Transmission Date: 20070319
  Serious: Yes (Other)
  Sender: FDA-Public Use
  Company Number: US-JNJFOC-20061200848

PATIENT
  Sex: Male
  Weight: 92.08 kg

DRUGS (18)
  1. INFLIXIMAB [Suspect]
     Route: 042
  2. INFLIXIMAB [Suspect]
     Route: 042
  3. INFLIXIMAB [Suspect]
     Route: 042
  4. INFLIXIMAB [Suspect]
     Indication: RHEUMATOID ARTHRITIS
     Route: 042
  5. OMEGA 3 [Concomitant]
     Dosage: 4 TABS DAILY
  6. ATENOLOL [Concomitant]
  7. FOLIC ACID [Concomitant]
  8. IBUPROFEN [Concomitant]
  9. LOTREL [Concomitant]
  10. PLAVIX [Concomitant]
  11. POTASSIUM ACETATE [Concomitant]
  12. PREVACID [Concomitant]
  13. TRIAMTERENE AND HYDROCHLOROTHIAZIDE [Concomitant]
  14. ASPIRIN [Concomitant]
  15. ZOCOR [Concomitant]
  16. NIASPAN [Concomitant]
  17. METHOTREXATE [Concomitant]
  18. LEFLUNOMIDE [Concomitant]

REACTIONS (2)
  - B-CELL LYMPHOMA [None]
  - MYCOSIS FUNGOIDES [None]
